FAERS Safety Report 12399772 (Version 1)
Quarter: 2016Q2

REPORT INFORMATION
  Report Type: Spontaneous
  Country: TR (occurrence: TR)
  Receive Date: 20160524
  Receipt Date: 20160524
  Transmission Date: 20160815
  Serious: Yes (Hospitalization, Other)
  Sender: FDA-Public Use
  Company Number: TR-UCBSA-2016019272

PATIENT
  Age: 39 Year
  Sex: Female

DRUGS (4)
  1. CARBAMAZEPINE. [Concomitant]
     Active Substance: CARBAMAZEPINE
     Indication: PARTIAL SEIZURES
     Dosage: 800MG/DAY
  2. LACOSAMIDE. [Suspect]
     Active Substance: LACOSAMIDE
     Indication: PARTIAL SEIZURES
     Dosage: 200MG/DAY
  3. ZIPRASIDONE. [Concomitant]
     Active Substance: ZIPRASIDONE
     Indication: PSYCHIATRIC SYMPTOM
     Dosage: 120MG/DAY
  4. KEPPRA [Suspect]
     Active Substance: LEVETIRACETAM
     Indication: PARTIAL SEIZURES
     Dosage: 2000 MG/DAY

REACTIONS (5)
  - Generalised tonic-clonic seizure [Recovering/Resolving]
  - Seizure [Recovering/Resolving]
  - Encephalopathy [Unknown]
  - Polydipsia psychogenic [Unknown]
  - Hyponatraemia [Recovered/Resolved]
